FAERS Safety Report 5234816-9 (Version None)
Quarter: 2007Q1

REPORT INFORMATION
  Report Type: 
  Country: None (occurrence: None)
  Receive Date: 20070209
  Receipt Date: 20070130
  Transmission Date: 20070707
  Serious: Yes (Life-Threatening)
  Sender: FDA-Public Use
  Company Number: FR-PFIZER INC-2006155869

PATIENT
  Sex: Male
  Weight: 89 kg

DRUGS (5)
  1. LYRICA [Suspect]
     Indication: PAIN
     Route: 048
     Dates: start: 20061116, end: 20061218
  2. LYRICA [Suspect]
     Indication: CERVICAL ROOT PAIN
  3. OMEPRAZOLE [Concomitant]
     Route: 048
  4. SIMVASTATIN [Concomitant]
     Route: 048
  5. CHONDROITIN SULFATE SODIUM [Concomitant]
     Route: 048

REACTIONS (2)
  - GLOSSITIS [None]
  - OEDEMA MUCOSAL [None]
